FAERS Safety Report 14837947 (Version 3)
Quarter: 2018Q4

REPORT INFORMATION
  Report Type: Spontaneous
  Country: DE (occurrence: DE)
  Receive Date: 20180502
  Receipt Date: 20181107
  Transmission Date: 20190204
  Serious: Yes (Hospitalization)
  Sender: FDA-Public Use
  Company Number: DE-ANIPHARMA-2018-DE-000066

PATIENT
  Age: 57 Year
  Sex: Female

DRUGS (2)
  1. CANDESARTAN CILEXETIL. [Suspect]
     Active Substance: CANDESARTAN CILEXETIL
     Indication: HYPERTENSION
     Dosage: 4 MG DAILY OR TWICE DAILY/ 4 MG QD / 5 MG QD
     Route: 048
  2. BISOPROLOL FUMARATE. [Suspect]
     Active Substance: BISOPROLOL FUMARATE
     Dosage: 1/2 TABLET 5MG EVERYDAY

REACTIONS (12)
  - Fall [Unknown]
  - Drug ineffective [Unknown]
  - Dizziness [Unknown]
  - Condition aggravated [Unknown]
  - Fatigue [Unknown]
  - Off label use [Unknown]
  - Wrist fracture [Unknown]
  - Panic reaction [Unknown]
  - Drug interaction [Unknown]
  - Influenza [Unknown]
  - Blood pressure abnormal [Recovering/Resolving]
  - Malaise [Unknown]

NARRATIVE: CASE EVENT DATE: 201712
